FAERS Safety Report 20261640 (Version 1)
Quarter: 2021Q4

REPORT INFORMATION
  Report Type: Spontaneous
  Country: US (occurrence: US)
  Receive Date: 20211231
  Receipt Date: 20211231
  Transmission Date: 20220304
  Serious: Yes (Other)
  Sender: FDA-Public Use
  Company Number: US-TELIGENT, INC-20211200115

PATIENT
  Age: 63 Year
  Sex: Female

DRUGS (1)
  1. ZINACEF [Suspect]
     Active Substance: CEFUROXIME SODIUM
     Indication: Antibiotic prophylaxis
     Dosage: 1 MILLIGRAM PER DECILITRE

REACTIONS (3)
  - Macular oedema [Recovered/Resolved]
  - Retinal detachment [Recovered/Resolved]
  - Product use in unapproved indication [Unknown]
